FAERS Safety Report 11713867 (Version 1)
Quarter: 2015Q4

REPORT INFORMATION
  Report Type: Spontaneous
  Country: MA (occurrence: MA)
  Receive Date: 20151109
  Receipt Date: 20151109
  Transmission Date: 20160304
  Serious: Yes (Hospitalization, Congenital Anomaly, Other)
  Sender: FDA-Public Use
  Company Number: PHHY2015MA144868

PATIENT

DRUGS (1)
  1. VOLTAREN [Suspect]
     Active Substance: DICLOFENAC SODIUM
     Indication: FOETAL EXPOSURE DURING PREGNANCY
     Dosage: MATERNAL DOSE: 75 MG/3 ML
     Route: 064

REACTIONS (5)
  - Neonatal respiratory distress syndrome [Unknown]
  - Neonatal cardiac failure [Unknown]
  - Foetal distress syndrome [Unknown]
  - Foetal arrhythmia [Unknown]
  - Premature baby [Unknown]
